FAERS Safety Report 14455510 (Version 3)
Quarter: 2018Q4

REPORT INFORMATION
  Report Type: Report from Study
  Country: JP (occurrence: JP)
  Receive Date: 20180129
  Receipt Date: 20181226
  Transmission Date: 20190204
  Serious: Yes (Hospitalization)
  Sender: FDA-Public Use
  Company Number: JP-BIOGEN-2018BI00511982

PATIENT
  Age: 3 Year
  Sex: Male
  Weight: 11.3 kg

DRUGS (30)
  1. KETALAR [Concomitant]
     Active Substance: KETAMINE HYDROCHLORIDE
     Route: 050
     Dates: start: 20171219, end: 20171219
  2. VEEN-D [Concomitant]
     Active Substance: DEXTROSE
     Route: 050
     Dates: start: 20180207, end: 20180207
  3. ONEALFA [Concomitant]
     Active Substance: ALFACALCIDOL
     Indication: VITAMIN D DEFICIENCY
     Route: 050
  4. MIDAZOLAM [Concomitant]
     Active Substance: MIDAZOLAM HYDROCHLORIDE
     Route: 050
     Dates: start: 20180207, end: 20180207
  5. LIDOCAINE. [Concomitant]
     Active Substance: LIDOCAINE
     Indication: ANAESTHESIA PROCEDURE
     Route: 062
     Dates: start: 20171121, end: 20171121
  6. LIDOCAINE. [Concomitant]
     Active Substance: LIDOCAINE
     Route: 062
     Dates: start: 20171205, end: 20171205
  7. LIDOCAINE. [Concomitant]
     Active Substance: LIDOCAINE
     Route: 062
     Dates: start: 20171219, end: 20171219
  8. LIDOCAINE. [Concomitant]
     Active Substance: LIDOCAINE
     Route: 062
     Dates: start: 20180207, end: 20180207
  9. L-CARTIN [Concomitant]
     Active Substance: LEVOCARNITINE HYDROCHLORIDE
     Indication: SPINAL MUSCULAR ATROPHY
     Route: 048
     Dates: end: 20171205
  10. ATROPINE. [Concomitant]
     Active Substance: ATROPINE
     Route: 050
     Dates: start: 20180207, end: 20180207
  11. MIDAZOLAM [Concomitant]
     Active Substance: MIDAZOLAM HYDROCHLORIDE
     Route: 050
     Dates: start: 20171205, end: 20171205
  12. VEEN-D [Concomitant]
     Active Substance: DEXTROSE
     Indication: ANAESTHESIA PROCEDURE
     Route: 050
     Dates: start: 20171121, end: 20171121
  13. SPINRAZA [Suspect]
     Active Substance: NUSINERSEN
     Indication: SPINAL MUSCULAR ATROPHY
     Route: 037
     Dates: start: 20171121, end: 20171121
  14. KETALAR [Concomitant]
     Active Substance: KETAMINE HYDROCHLORIDE
     Indication: ANAESTHESIA PROCEDURE
     Route: 050
     Dates: start: 20171121, end: 20171121
  15. ATROPINE. [Concomitant]
     Active Substance: ATROPINE
     Indication: ANAESTHESIA PROCEDURE
     Route: 050
     Dates: start: 20171121, end: 20171121
  16. SPINRAZA [Suspect]
     Active Substance: NUSINERSEN
     Route: 037
     Dates: start: 20171219, end: 20171219
  17. KETALAR [Concomitant]
     Active Substance: KETAMINE HYDROCHLORIDE
     Route: 050
     Dates: start: 20171205, end: 20171205
  18. ATROPINE. [Concomitant]
     Active Substance: ATROPINE
     Route: 050
     Dates: start: 20171205, end: 20171205
  19. MIDAZOLAM [Concomitant]
     Active Substance: MIDAZOLAM HYDROCHLORIDE
     Indication: ANAESTHESIA PROCEDURE
     Route: 050
     Dates: start: 20171121, end: 20171121
  20. SODIUM VALPROATE [Concomitant]
     Active Substance: VALPROATE SODIUM
     Indication: SPINAL MUSCULAR ATROPHY
     Route: 048
     Dates: end: 20171205
  21. MIDAZOLAM [Concomitant]
     Active Substance: MIDAZOLAM HYDROCHLORIDE
     Route: 050
     Dates: start: 20171219, end: 20171219
  22. KLARICID [Concomitant]
     Active Substance: CLARITHROMYCIN
     Indication: PROPHYLAXIS
     Route: 048
     Dates: end: 20171124
  23. SPINRAZA [Suspect]
     Active Substance: NUSINERSEN
     Route: 037
     Dates: start: 20171205, end: 20171205
  24. KETALAR [Concomitant]
     Active Substance: KETAMINE HYDROCHLORIDE
     Route: 050
     Dates: start: 20180207, end: 20180207
  25. CARBOCISTEINE [Concomitant]
     Active Substance: CARBOCYSTEINE
     Indication: PROPHYLAXIS
     Route: 048
     Dates: end: 20180112
  26. SPINRAZA [Suspect]
     Active Substance: NUSINERSEN
     Route: 037
     Dates: start: 20180207, end: 20180207
  27. ATROPINE. [Concomitant]
     Active Substance: ATROPINE
     Route: 050
     Dates: start: 20171219, end: 20171219
  28. VEEN-D [Concomitant]
     Active Substance: DEXTROSE
     Route: 050
     Dates: start: 20171205, end: 20171205
  29. VEEN-D [Concomitant]
     Active Substance: DEXTROSE
     Route: 050
     Dates: start: 20171219, end: 20171219
  30. MUCOSAL [Concomitant]
     Indication: PROPHYLAXIS
     Route: 048
     Dates: end: 20180112

REACTIONS (3)
  - Pneumonia [Recovered/Resolved]
  - Influenza [Not Recovered/Not Resolved]
  - Respiratory tract infection [Unknown]

NARRATIVE: CASE EVENT DATE: 20171229
